FAERS Safety Report 11394000 (Version 1)
Quarter: 2015Q3

REPORT INFORMATION
  Report Type: Spontaneous
  Country: US (occurrence: US)
  Receive Date: 20150819
  Receipt Date: 20150819
  Transmission Date: 20151125
  Serious: Yes (Other)
  Sender: FDA-Public Use
  Company Number: US-HOSPIRA-1250564

PATIENT
  Age: 17 Year
  Sex: Male
  Weight: 82.1 kg

DRUGS (3)
  1. MIDAZOLAM [Suspect]
     Active Substance: MIDAZOLAM\MIDAZOLAM HYDROCHLORIDE
     Indication: ANAESTHESIA PROCEDURE
     Dosage: 5 MG, 1
     Route: 042
     Dates: start: 20120323, end: 20120323
  2. FENTANYL. [Concomitant]
     Active Substance: FENTANYL
     Indication: SEDATIVE THERAPY
     Dosage: 50 MCG, X1
     Route: 042
     Dates: start: 20120323, end: 20120323
  3. PROPOFOL. [Concomitant]
     Active Substance: PROPOFOL
     Indication: SEDATIVE THERAPY
     Dosage: 200 MCG/KG/MIN, UNKNOWN
     Route: 042
     Dates: start: 20120323

REACTIONS (3)
  - Unresponsive to stimuli [Recovered/Resolved]
  - Nausea [Recovered/Resolved]
  - Eye movement disorder [Recovered/Resolved]

NARRATIVE: CASE EVENT DATE: 20120323
